FAERS Safety Report 4835157-1 (Version None)
Quarter: 2005Q4

REPORT INFORMATION
  Report Type: 
  Country: None (occurrence: None)
  Receive Date: 20051122
  Receipt Date: 20050921
  Transmission Date: 20060501
  Serious: Yes (Hospitalization)
  Sender: FDA-Public Use
  Company Number: US-MERCK-0509USA03165

PATIENT
  Age: 53 Year
  Sex: Female
  Weight: 135 kg

DRUGS (23)
  1. VIOXX [Suspect]
     Indication: MONARTHRITIS
     Route: 048
     Dates: start: 19990614, end: 20040901
  2. VIOXX [Suspect]
     Route: 048
     Dates: start: 19990614, end: 20040901
  3. VIOXX [Suspect]
     Route: 048
     Dates: start: 19990614, end: 20040901
  4. PREMARIN [Concomitant]
     Route: 065
  5. KEFLEX [Concomitant]
     Route: 065
  6. FLEXERIL [Concomitant]
     Route: 065
  7. NAPROXEN [Concomitant]
     Route: 065
  8. CECLOR [Concomitant]
     Route: 065
  9. PHENTERMINE [Concomitant]
     Route: 065
  10. RELAFEN [Concomitant]
     Route: 065
  11. MEDROL [Concomitant]
     Route: 065
  12. LORTAB [Concomitant]
     Route: 065
  13. BEXTRA [Concomitant]
     Route: 065
  14. LASIX [Concomitant]
     Route: 065
  15. AUGMENTIN [Concomitant]
     Route: 065
  16. PREDNISONE [Concomitant]
     Route: 065
  17. LOPRESSOR [Concomitant]
     Route: 065
  18. LIPITOR [Concomitant]
     Route: 065
  19. XANAX [Concomitant]
     Route: 065
  20. PRAVACHOL [Concomitant]
     Route: 065
  21. WELLBUTRIN [Concomitant]
     Route: 065
  22. ASPIRIN [Concomitant]
     Route: 065
  23. HYDROXYZINE HYDROCHLORIDE [Concomitant]
     Route: 065

REACTIONS (5)
  - ABDOMINAL HERNIA [None]
  - ARTHRALGIA [None]
  - CHEST PAIN [None]
  - MYOCARDIAL INFARCTION [None]
  - SHOULDER PAIN [None]
